FAERS Safety Report 24353806 (Version 1)
Quarter: 2024Q3

REPORT INFORMATION
  Report Type: Spontaneous
  Country: CN (occurrence: CN)
  Receive Date: 20240923
  Receipt Date: 20240923
  Transmission Date: 20241017
  Serious: Yes (Hospitalization)
  Sender: NOVARTIS
  Company Number: CN-002147023-NVSC2024CN187988

PATIENT
  Age: 64 Year
  Sex: Male

DRUGS (2)
  1. SECUKINUMAB [Suspect]
     Active Substance: SECUKINUMAB
     Indication: Psoriasis
     Dosage: 300 ML, QD FIRST INJECTION
     Route: 058
     Dates: start: 20240817
  2. SECUKINUMAB [Suspect]
     Active Substance: SECUKINUMAB
     Dosage: 300 ML, QD SECOND INJECTION
     Route: 058
     Dates: start: 20240824

REACTIONS (8)
  - Drug eruption [Recovered/Resolved]
  - Flushing [Recovered/Resolved]
  - Pruritus [Recovered/Resolved]
  - Blister [Recovering/Resolving]
  - Erythema [Recovering/Resolving]
  - Cutis laxa [Recovering/Resolving]
  - Swelling [Recovering/Resolving]
  - Oral mucosa erosion [Recovering/Resolving]

NARRATIVE: CASE EVENT DATE: 20240825
